FAERS Safety Report 4743176-9 (Version None)
Quarter: 2005Q3

REPORT INFORMATION
  Report Type: 
  Country: None (occurrence: None)
  Receive Date: 20050811
  Receipt Date: 20050728
  Transmission Date: 20060218
  Serious: Yes (Other)
  Sender: FDA-Public Use
  Company Number: 2005079510

PATIENT
  Age: 71 Year
  Sex: Male
  Weight: 90.7194 kg

DRUGS (7)
  1. NORVASC [Suspect]
     Indication: HYPERTENSION
  2. CELEBREX [Suspect]
     Indication: MUSCULOSKELETAL PAIN
     Dosage: 200 MG (200 MG, 1 IN 1 D), ORAL
     Route: 048
  3. ADVAIR DISKUS (FLUTICASONE PROPIONATE, SALMETEROL XINAFOATE) [Concomitant]
  4. ATROVENT [Concomitant]
  5. ALBUTEROL [Concomitant]
  6. COUMADIN [Concomitant]
  7. HYDROCODONE (HYDROCODONE) [Concomitant]

REACTIONS (10)
  - BLOOD PRESSURE INADEQUATELY CONTROLLED [None]
  - GASTROOESOPHAGEAL REFLUX DISEASE [None]
  - INADEQUATE ANALGESIA [None]
  - JOINT DISLOCATION [None]
  - KNEE ARTHROPLASTY [None]
  - OEDEMA [None]
  - RASH ERYTHEMATOUS [None]
  - RASH GENERALISED [None]
  - ROAD TRAFFIC ACCIDENT [None]
  - THROMBOSIS [None]
